FAERS Safety Report 9010366 (Version 2)
Quarter: 2020Q3

REPORT INFORMATION
  Report Type: Spontaneous
  Country: PL (occurrence: PL)
  Receive Date: 20130109
  Receipt Date: 20200914
  Transmission Date: 20201103
  Serious: Yes (Life-Threatening)
  Sender: FDA-Public Use
  Company Number: PL-BAYER-2013-002710

PATIENT
  Age: 76 Year
  Sex: Female
  Weight: 95 kg

DRUGS (1)
  1. ULTRAVIST [Suspect]
     Active Substance: IOPROMIDE
     Indication: GASTROINTESTINAL DISORDER
     Dosage: 150 ML, UNK
     Route: 042
     Dates: start: 20121214

REACTIONS (4)
  - Allergic oedema [Unknown]
  - Urticaria [Unknown]
  - Blood pressure systolic increased [Unknown]
  - Dermatitis allergic [Unknown]

NARRATIVE: CASE EVENT DATE: 20121214
